FAERS Safety Report 9119204 (Version 1)
Quarter: 2013Q1

REPORT INFORMATION
  Report Type: Spontaneous
  Country: US (occurrence: None)
  Receive Date: 20130221
  Receipt Date: 20130221
  Transmission Date: 20140127
  Serious: Yes (Other)
  Sender: FDA-Public Use
  Company Number: None

PATIENT
  Age: 50 Year
  Sex: Female
  Weight: 88 kg

DRUGS (5)
  1. ZYPREXA [Suspect]
     Indication: BIPOLAR DISORDER
     Route: 048
  2. VESICARE [Concomitant]
  3. LAMICTAL [Concomitant]
  4. DOXYCYCLINE [Concomitant]
  5. DEPAKOTE [Concomitant]

REACTIONS (2)
  - Agitation [None]
  - Aggression [None]
